FAERS Safety Report 10006916 (Version 1)
Quarter: 2014Q1

REPORT INFORMATION
  Report Type: Spontaneous
  Country: US (occurrence: None)
  Receive Date: 20140312
  Receipt Date: 20140312
  Transmission Date: 20141002
  Serious: Yes (Life-Threatening, Hospitalization, Disabling)
  Sender: FDA-Public Use
  Company Number: None

PATIENT
  Age: 43 Year
  Sex: Male
  Weight: 80 kg

DRUGS (1)
  1. VARENICLINE TARTRATE [Suspect]
     Indication: SMOKING CESSATION THERAPY
     Route: 048

REACTIONS (21)
  - Malaise [None]
  - Nausea [None]
  - Salivary hypersecretion [None]
  - Headache [None]
  - Arthralgia [None]
  - Muscle spasms [None]
  - Vomiting [None]
  - Weight decreased [None]
  - Anger [None]
  - Psychotic disorder [None]
  - Major depression [None]
  - Anxiety [None]
  - Suicidal ideation [None]
  - Neck pain [None]
  - Vertigo [None]
  - Fall [None]
  - Nuclear magnetic resonance imaging brain abnormal [None]
  - Epilepsy [None]
  - Feeling drunk [None]
  - Drug hypersensitivity [None]
  - Dependence [None]
